FAERS Safety Report 8549013-9 (Version None)
Quarter: 2012Q3

REPORT INFORMATION
  Report Type: 
  Country: None (occurrence: None)
  Receive Date: 20120730
  Receipt Date: 20120718
  Transmission Date: 20120928
  Serious: Yes (Hospitalization)
  Sender: FDA-Public Use
  Company Number: DE-MPIJNJ-2012-05080

PATIENT

DRUGS (9)
  1. AMLODIPINE BESYLATE [Concomitant]
     Indication: HYPERTONIA
     Dosage: 10 MG, QD
     Dates: end: 20120713
  2. CANDESARTAN CILEXETIL [Concomitant]
     Indication: HYPERTONIA
     Dosage: 16 MG, QD
     Dates: end: 20120723
  3. TORSEMIDE [Concomitant]
     Dosage: 10 MG, QD
  4. CALCIUM CITRATE W/COLECALCIFEROL [Concomitant]
     Dosage: 500 MG, BID
     Dates: end: 20120713
  5. CALCIUM                            /00009901/ [Concomitant]
     Indication: RENAL DISORDER
     Dosage: 950 MG, UNK
     Dates: end: 20120713
  6. METOPROLOL TARTRATE [Concomitant]
     Indication: HYPERTONIA
     Dosage: 23.75 MG, QD
     Dates: end: 20120713
  7. SODIUM BICARBONATE [Concomitant]
     Dosage: UNK
     Dates: end: 20120713
  8. VELCADE [Suspect]
     Indication: MULTIPLE MYELOMA
     Dosage: 2.5 MG, UNK
     Route: 058
     Dates: start: 20120703, end: 20120713
  9. PANTOPRAZOLE [Concomitant]
     Dosage: 40 MG, UNK
     Dates: end: 20120713

REACTIONS (3)
  - DEHYDRATION [None]
  - SPEECH DISORDER [None]
  - APHASIA [None]
